FAERS Safety Report 8821157 (Version 1)
Quarter: 2012Q4

REPORT INFORMATION
  Report Type: 
  Country: US (occurrence: US)
  Receive Date: 20121002
  Receipt Date: 20121002
  Transmission Date: 20130627
  Serious: No
  Sender: FDA-Public Use
  Company Number: US-BRISTOL-MYERS SQUIBB COMPANY-16797607

PATIENT
  Sex: Female

DRUGS (2)
  1. BUSPAR [Suspect]
  2. VIIBRYD [Suspect]
     Dosage: Tab
     Route: 048

REACTIONS (1)
  - Anxiety [Not Recovered/Not Resolved]
